FAERS Safety Report 7148888-8 (Version None)
Quarter: 2010Q4

REPORT INFORMATION
  Report Type: 
  Country: None (occurrence: None)
  Receive Date: 20101209
  Receipt Date: 20101201
  Transmission Date: 20110411
  Serious: Yes (Death, Hospitalization)
  Sender: FDA-Public Use
  Company Number: JP-AMGEN-JPNCT2010008251

PATIENT

DRUGS (12)
  1. PANITUMUMAB [Suspect]
     Indication: COLORECTAL CANCER METASTATIC
     Dosage: 6 MG/KG, Q2WK
     Route: 041
     Dates: start: 20100721, end: 20100924
  2. PANITUMUMAB [Suspect]
     Dosage: 6 MG/KG, Q2WK
     Route: 041
     Dates: start: 20101022, end: 20101022
  3. ANTIHISTAMINES [Concomitant]
     Indication: PROPHYLAXIS
     Dosage: UNK
     Route: 065
  4. CORTICOSTEROIDS [Concomitant]
     Indication: PROPHYLAXIS
     Dosage: UNK
     Route: 065
  5. RIBOFLAVIN TAB [Concomitant]
     Route: 048
     Dates: start: 20100729, end: 20101111
  6. PYDOXAL [Concomitant]
     Route: 048
     Dates: start: 20100729, end: 20101111
  7. HIRUDOID [Concomitant]
     Dosage: UNK
     Route: 062
     Dates: start: 20100729, end: 20101111
  8. RINDERON-VG [Concomitant]
     Dosage: UNK
     Route: 062
     Dates: start: 20100729, end: 20101111
  9. OPIUM TINCTURE [Concomitant]
     Route: 048
     Dates: start: 20101008, end: 20101111
  10. OXYCONTIN [Concomitant]
     Route: 048
  11. DIOVAN [Concomitant]
     Route: 048
  12. LASIX [Concomitant]
     Route: 048

REACTIONS (7)
  - ANAEMIA [None]
  - COLORECTAL CANCER [None]
  - DECREASED APPETITE [None]
  - DERMATITIS ACNEIFORM [None]
  - DIARRHOEA [None]
  - HYPOMAGNESAEMIA [None]
  - MALAISE [None]
